FAERS Safety Report 10462579 (Version 1)
Quarter: 2014Q3

REPORT INFORMATION
  Report Type: Spontaneous
  Country: BR (occurrence: BR)
  Receive Date: 20140918
  Receipt Date: 20140918
  Transmission Date: 20150326
  Serious: Yes (Other)
  Sender: FDA-Public Use
  Company Number: BR-PFIZER INC-2014255616

PATIENT
  Age: 66 Year
  Sex: Female
  Weight: 100 kg

DRUGS (5)
  1. METFORMIN [Concomitant]
     Active Substance: METFORMIN HYDROCHLORIDE
     Indication: BLOOD GLUCOSE ABNORMAL
     Dosage: 2 TABLETS, DAILY
  2. LOSARTAN [Concomitant]
     Active Substance: LOSARTAN
     Indication: BLOOD PRESSURE ABNORMAL
     Dosage: 2 TABLETS, DAILY
  3. LYRICA [Suspect]
     Active Substance: PREGABALIN
     Indication: NEURALGIA
     Dosage: 1 TABLET (AS REPORTED) OF STRENGTH 75 MG, UNSPECIFIED FREQUENCY
     Route: 048
  4. LYRICA [Suspect]
     Active Substance: PREGABALIN
     Dosage: 1 TABLET (AS REPORTED) 150 MG, DAILY
  5. OMEPRAZOLE. [Concomitant]
     Active Substance: OMEPRAZOLE
     Indication: GASTRIC DISORDER
     Dosage: 1 TABLET, DAILY

REACTIONS (12)
  - Fall [Unknown]
  - Limb discomfort [Unknown]
  - Gait disturbance [Unknown]
  - Nerve degeneration [Unknown]
  - Hand deformity [Recovered/Resolved]
  - Paraplegia [Unknown]
  - Activities of daily living impaired [Unknown]
  - Back pain [Unknown]
  - Bedridden [Not Recovered/Not Resolved]
  - Fear [Unknown]
  - Intervertebral disc protrusion [Not Recovered/Not Resolved]
  - Osteoarthritis [Not Recovered/Not Resolved]

NARRATIVE: CASE EVENT DATE: 2013
